FAERS Safety Report 7175538-7 (Version None)
Quarter: 2010Q4

REPORT INFORMATION
  Report Type: 
  Country: None (occurrence: None)
  Receive Date: 20101220
  Receipt Date: 20100319
  Transmission Date: 20110411
  Serious: No
  Sender: FDA-Public Use
  Company Number: US-AMGEN-TCS400801

PATIENT

DRUGS (3)
  1. ENBREL [Suspect]
     Indication: PSORIATIC ARTHROPATHY
     Dosage: 50 MG, 2 TIMES/WK
     Route: 058
     Dates: start: 20100225
  2. METHOTREXATE [Concomitant]
     Dosage: UNK UNK, UNK
  3. CYCLOSPORINE [Concomitant]
     Dosage: 200 MG, QD
     Route: 048
     Dates: start: 20100130

REACTIONS (1)
  - RECTAL HAEMORRHAGE [None]
